FAERS Safety Report 25213760 (Version 1)
Quarter: 2025Q2

REPORT INFORMATION
  Report Type: Spontaneous
  Country: CA (occurrence: CA)
  Receive Date: 20250418
  Receipt Date: 20250418
  Transmission Date: 20250717
  Serious: Yes (Hospitalization)
  Sender: PFIZER
  Company Number: CA-PFIZER INC-202500077369

PATIENT
  Age: 73 Year
  Sex: Male

DRUGS (3)
  1. IRINOTECAN HYDROCHLORIDE [Suspect]
     Active Substance: IRINOTECAN HYDROCHLORIDE
  2. LEUCOVORIN [Suspect]
     Active Substance: LEUCOVORIN\LEUCOVORIN CALCIUM
  3. FLUOROURACIL [Suspect]
     Active Substance: FLUOROURACIL

REACTIONS (3)
  - Febrile neutropenia [Recovered/Resolved]
  - Pyelonephritis [Recovered/Resolved]
  - Septic shock [Recovered/Resolved]
